FAERS Safety Report 25830625 (Version 3)
Quarter: 2025Q4

REPORT INFORMATION
  Report Type: Spontaneous
  Country: JP (occurrence: JP)
  Receive Date: 20250922
  Receipt Date: 20251219
  Transmission Date: 20260118
  Serious: Yes (Death, Hospitalization, Other)
  Sender: BRISTOL-MYERS SQUIBB COMPANY
  Company Number: JP-ONO-2025JP016916

PATIENT
  Age: 78 Year
  Sex: Male

DRUGS (2)
  1. OPDIVO [Suspect]
     Active Substance: NIVOLUMAB
     Indication: Transitional cell carcinoma
     Dosage: 240MG
     Route: 041
     Dates: start: 20250205, end: 20250205
  2. OPDIVO [Suspect]
     Active Substance: NIVOLUMAB
     Dosage: 240MG
     Route: 041
     Dates: start: 20250305, end: 20250430

REACTIONS (2)
  - Cholangitis [Fatal]
  - Immune-mediated hepatitis [Fatal]

NARRATIVE: CASE EVENT DATE: 20250809
